FAERS Safety Report 13201112 (Version 1)
Quarter: 2017Q1

REPORT INFORMATION
  Report Type: Report from Study
  Country: US (occurrence: US)
  Receive Date: 20170208
  Receipt Date: 20170208
  Transmission Date: 20170428
  Serious: No
  Sender: FDA-Public Use
  Company Number: US-AMGEN-USASP2013064446

PATIENT
  Age: 52 Year
  Sex: Female

DRUGS (8)
  1. PERJETA [Suspect]
     Active Substance: PERTUZUMAB
     Indication: BREAST CANCER METASTATIC
     Dosage: 420 MG, 1 IN 3 WK
     Route: 042
  2. DEXAMETHASONE. [Concomitant]
     Active Substance: DEXAMETHASONE
     Dosage: 20 MG, 1 IN 21 D
     Route: 042
     Dates: start: 20131015
  3. DEXAMETHASONE. [Concomitant]
     Active Substance: DEXAMETHASONE
     Dosage: 21 MG, 1 IN 21 D
     Route: 042
  4. NEULASTA [Suspect]
     Active Substance: PEGFILGRASTIM
     Indication: PRODUCT USED FOR UNKNOWN INDICATION
     Dosage: UNK
     Route: 065
  5. PALONOSETRON [Concomitant]
     Active Substance: PALONOSETRON
     Dosage: 0.25 MG, 1 IN 21 D
     Route: 042
     Dates: start: 20131015
  6. TAXOTERE [Concomitant]
     Active Substance: DOCETAXEL
     Dosage: 125 MG, 1 IN 21 D
     Route: 042
  7. HERCEPTIN [Suspect]
     Active Substance: TRASTUZUMAB
     Indication: BREAST CANCER METASTATIC
     Dosage: 395 MG, 1 IN 3 WK
     Route: 042
  8. HALAVEN [Concomitant]
     Active Substance: ERIBULIN MESYLATE

REACTIONS (5)
  - Heart rate increased [Unknown]
  - Constipation [Unknown]
  - Alopecia [Unknown]
  - Fatigue [Unknown]
  - Diarrhoea [Unknown]

NARRATIVE: CASE EVENT DATE: 20130813
